FAERS Safety Report 9355817 (Version 1)
Quarter: 2013Q2

REPORT INFORMATION
  Report Type: Spontaneous
  Country: IT (occurrence: IT)
  Receive Date: 20130619
  Receipt Date: 20130619
  Transmission Date: 20140414
  Serious: Yes (Hospitalization)
  Sender: FDA-Public Use
  Company Number: CHPA2013IT009929

PATIENT
  Sex: Male

DRUGS (2)
  1. IBUPROFEN [Suspect]
     Dosage: UNK, UNK
     Route: 065
  2. ACETYLSALICYLIC ACID [Suspect]
     Dosage: UNK, UNK
     Route: 065

REACTIONS (1)
  - Rectal haemorrhage [Unknown]
